FAERS Safety Report 18306254 (Version 3)
Quarter: 2020Q4

REPORT INFORMATION
  Report Type: Spontaneous
  Country: BE (occurrence: BE)
  Receive Date: 20200924
  Receipt Date: 20201027
  Transmission Date: 20210113
  Serious: Yes (Disabling)
  Sender: FDA-Public Use
  Company Number: BE-BIOGEN-2020BI00925722

PATIENT
  Age: 44 Year
  Sex: Male
  Weight: 100 kg

DRUGS (6)
  1. TADALAFIL. [Concomitant]
     Active Substance: TADALAFIL
     Indication: MULTIPLE SCLEROSIS
     Route: 065
     Dates: start: 20200519
  2. SIFROL [Concomitant]
     Active Substance: PRAMIPEXOLE
     Indication: MULTIPLE SCLEROSIS
     Route: 065
     Dates: start: 20170327
  3. TECFIDERA [Suspect]
     Active Substance: DIMETHYL FUMARATE
     Indication: RELAPSING-REMITTING MULTIPLE SCLEROSIS
     Dosage: MAINTENANCE DOSE
     Route: 048
     Dates: start: 201603
  4. XYLOCAINE [Concomitant]
     Active Substance: LIDOCAINE HYDROCHLORIDE
     Indication: ANAESTHESIA PROCEDURE
     Route: 042
     Dates: start: 20200918, end: 20200918
  5. DORMICUM [Concomitant]
     Indication: ANAESTHESIA PROCEDURE
     Route: 042
     Dates: start: 20200918, end: 20200918
  6. CIALIS [Concomitant]
     Active Substance: TADALAFIL
     Indication: MULTIPLE SCLEROSIS
     Route: 065
     Dates: start: 20150902, end: 20190515

REACTIONS (17)
  - Contusion [Recovered/Resolved]
  - Tension headache [Not Recovered/Not Resolved]
  - Rhinitis [Recovered/Resolved]
  - Headache [Recovered/Resolved]
  - Calculus urinary [Recovered/Resolved]
  - Abdominal pain upper [Unknown]
  - Lung adenocarcinoma stage IV [Not Recovered/Not Resolved]
  - Gastrooesophageal reflux disease [Not Recovered/Not Resolved]
  - Gastroenteritis viral [Recovered/Resolved]
  - Tooth infection [Recovered/Resolved]
  - Pulpless tooth [Recovered/Resolved]
  - Pain [Not Recovered/Not Resolved]
  - Fall [Recovered/Resolved]
  - Non-cardiac chest pain [Not Recovered/Not Resolved]
  - Gastroenteritis [Recovered/Resolved]
  - Cough [Recovered/Resolved]
  - Urinary tract infection [Recovered/Resolved]

NARRATIVE: CASE EVENT DATE: 201610
